FAERS Safety Report 6787262-0 (Version None)
Quarter: 2010Q2

REPORT INFORMATION
  Report Type: 
  Country: None (occurrence: None)
  Receive Date: 20100621
  Receipt Date: 20100605
  Transmission Date: 20101027
  Serious: Yes (Hospitalization)
  Sender: FDA-Public Use
  Company Number: 2010002320

PATIENT
  Age: 56 Year
  Sex: Male

DRUGS (6)
  1. TARCEVA [Suspect]
     Indication: LUNG NEOPLASM MALIGNANT
     Dosage: 150 MG, QD, ORAL
     Route: 048
     Dates: start: 20100212, end: 20100423
  2. MULTI-VITAMIN [Concomitant]
  3. FERROUS SULFATE TAB [Concomitant]
  4. DOMPERIDONE (DOMPERIDONE) [Concomitant]
  5. LEVODROPROPIZINE (LEVODROPROPIZINE) [Concomitant]
  6. SALBUTAMOL (SALBUTAMOL) [Concomitant]

REACTIONS (5)
  - ANAEMIA [None]
  - ASTHENIA [None]
  - COUGH [None]
  - DECREASED APPETITE [None]
  - DERMATITIS ACNEIFORM [None]
